FAERS Safety Report 7091607-4 (Version None)
Quarter: 2010Q4

REPORT INFORMATION
  Report Type: 
  Country: None (occurrence: None)
  Receive Date: 20101109
  Receipt Date: 20101105
  Transmission Date: 20110411
  Serious: Yes (Life-Threatening)
  Sender: FDA-Public Use
  Company Number: GB-PFIZER INC-2010142084

PATIENT
  Age: 28 Year
  Sex: Male
  Weight: 102.8 kg

DRUGS (7)
  1. SOMATROPIN [Suspect]
     Indication: HYPOPITUITARISM
     Dosage: 0.6 MG, 1X/DAY
     Dates: start: 20070516, end: 20071223
  2. SUSTANON 250 [Concomitant]
     Indication: BLOOD LUTEINISING HORMONE DECREASED
     Dosage: 250 MG, UNK
     Dates: start: 19850701
  3. SUSTANON 250 [Concomitant]
     Indication: BLOOD FOLLICLE STIMULATING HORMONE DECREASED
  4. SUSTANON 250 [Concomitant]
     Indication: HYPOGONADISM MALE
  5. PHENYTOIN [Concomitant]
     Indication: EPILEPSY
     Dosage: 125 MG, 2X/DAY
     Dates: start: 19850701
  6. LEVOTHYROXINE SODIUM [Concomitant]
     Indication: PRIMARY HYPOTHYROIDISM
     Dosage: 150 UG, 1X/DAY
     Dates: start: 19850701
  7. HYDROCORTISONE [Concomitant]
     Indication: BLOOD CORTICOTROPHIN DECREASED
     Dosage: 25 MG, 1X/DAY
     Dates: start: 19850701

REACTIONS (1)
  - HODGKIN'S DISEASE [None]
